FAERS Safety Report 13688802 (Version 1)
Quarter: 2017Q2

REPORT INFORMATION
  Report Type: Spontaneous
  Country: US (occurrence: US)
  Receive Date: 20170623
  Receipt Date: 20170623
  Transmission Date: 20170830
  Serious: Yes (Other)
  Sender: FDA-Public Use
  Company Number: None

PATIENT
  Age: 41 Year
  Sex: Female
  Weight: 54.9 kg

DRUGS (7)
  1. URIBEL [Suspect]
     Active Substance: HYOSCYAMINE SULFATE\METHENAMINE\METHYLENE BLUE\PHENYL SALICYLATE\SODIUM PHOSPHATE, MONOBASIC, MONOHYDRATE
     Indication: BLADDER PAIN
     Dosage: ?          QUANTITY:1 CAPSULE(S);?
     Route: 048
     Dates: start: 20170601, end: 20170623
  2. AMBIEN [Concomitant]
     Active Substance: ZOLPIDEM TARTRATE
  3. IBUPROFEN. [Concomitant]
     Active Substance: IBUPROFEN
  4. RITALIN [Concomitant]
     Active Substance: METHYLPHENIDATE HYDROCHLORIDE
  5. KLONOPIN [Concomitant]
     Active Substance: CLONAZEPAM
  6. ZYPREXA [Concomitant]
     Active Substance: OLANZAPINE
  7. NEURONTIN [Concomitant]
     Active Substance: GABAPENTIN

REACTIONS (1)
  - Abdominal pain [None]

NARRATIVE: CASE EVENT DATE: 20170623
